FAERS Safety Report 5967664-2 (Version None)
Quarter: 2008Q4

REPORT INFORMATION
  Report Type: 
  Country: None (occurrence: None)
  Receive Date: 20081126
  Receipt Date: 20081118
  Transmission Date: 20090506
  Serious: Yes (Other)
  Sender: FDA-Public Use
  Company Number: PHHY2008DE14824

PATIENT
  Sex: Male

DRUGS (2)
  1. TEGRETOL [Suspect]
     Indication: PETIT MAL EPILEPSY
     Dosage: 1 DF, QD
  2. TEGRETOL [Suspect]
     Indication: GRAND MAL CONVULSION

REACTIONS (2)
  - BLOOD TRIGLYCERIDES INCREASED [None]
  - CEREBRAL ATROPHY [None]
